APPROVED DRUG PRODUCT: KIONEX
Active Ingredient: SODIUM POLYSTYRENE SULFONATE
Strength: 15GM/60ML
Dosage Form/Route: SUSPENSION;ORAL, RECTAL
Application: A040028 | Product #001 | TE Code: AA
Applicant: ANI PHARMACEUTICALS INC
Approved: Sep 17, 2007 | RLD: No | RS: No | Type: RX